FAERS Safety Report 15495835 (Version 1)
Quarter: 2018Q4

REPORT INFORMATION
  Report Type: Spontaneous
  Country: US (occurrence: US)
  Receive Date: 20181013
  Receipt Date: 20181013
  Transmission Date: 20190205
  Serious: No
  Sender: FDA-Public Use
  Company Number: US-JNJFOC-20180920624

PATIENT
  Age: 2 Year
  Sex: Male

DRUGS (1)
  1. INFANTS TYLENOL [Suspect]
     Active Substance: ACETAMINOPHEN
     Indication: PRODUCT USED FOR UNKNOWN INDICATION
     Route: 048
     Dates: start: 20180916

REACTIONS (3)
  - Accidental exposure to product [Unknown]
  - Overdose [Unknown]
  - Failure of child resistant mechanism for pharmaceutical product [Unknown]
